FAERS Safety Report 10337004 (Version 1)
Quarter: 2014Q3

REPORT INFORMATION
  Report Type: Spontaneous
  Country: BR (occurrence: BR)
  Receive Date: 20140723
  Receipt Date: 20140723
  Transmission Date: 20150326
  Serious: Yes (Hospitalization)
  Sender: FDA-Public Use
  Company Number: BR-PFIZER INC-2014203642

PATIENT
  Age: 63 Year
  Sex: Male
  Weight: 63 kg

DRUGS (2)
  1. CODEX [Concomitant]
     Active Substance: ACETAMINOPHEN\CODEINE PHOSPHATE
     Indication: PAIN
     Dosage: 1 DF, DAILY AS NEEDED
     Dates: start: 201312
  2. CITALOR [Suspect]
     Active Substance: ATORVASTATIN
     Indication: CARDIAC DISORDER
     Dosage: 10 MG, 1X/DAY
     Route: 048
     Dates: start: 201312

REACTIONS (1)
  - Mitral valve disease [Unknown]

NARRATIVE: CASE EVENT DATE: 201401
